FAERS Safety Report 6300303-X (Version None)
Quarter: 2009Q3

REPORT INFORMATION
  Report Type: 
  Country: None (occurrence: None)
  Receive Date: 20090804
  Receipt Date: 20090721
  Transmission Date: 20100115
  Serious: Yes (Other)
  Sender: FDA-Public Use
  Company Number: BG-1170317

PATIENT
  Age: 72 Year
  Sex: Female

DRUGS (5)
  1. BETOPTIC [Suspect]
     Indication: GLAUCOMA
     Dosage: BID, OPHTHALMIC
     Route: 047
     Dates: start: 20040101
  2. LORISTA (LOSARTAN POTASSIUM) [Concomitant]
  3. DIGOXIN [Concomitant]
  4. LEVOTHYROXINE SODIUM [Concomitant]
  5. VITREOLENT (IODUCYL) [Concomitant]

REACTIONS (3)
  - BRADYCARDIA [None]
  - MYOCARDIAL INFARCTION [None]
  - TREMOR [None]
